FAERS Safety Report 8868941 (Version 1)
Quarter: 2012Q4

REPORT INFORMATION
  Report Type: 
  Country: US (occurrence: US)
  Receive Date: 20121023
  Receipt Date: 20121023
  Transmission Date: 20130627
  Serious: No
  Sender: FDA-Public Use
  Company Number: US-AMGEN-USASP2012054277

PATIENT
  Age: 58 Year
  Sex: Female
  Weight: 80.73 kg

DRUGS (13)
  1. ENBREL [Suspect]
     Indication: PRODUCT USED FOR UNKNOWN INDICATION
     Dosage: 50 mg, qwk
     Route: 058
  2. PILOCARPINE [Concomitant]
     Dosage: 5 mg, UNK
  3. METHOTREXATE [Concomitant]
     Dosage: 2.5 mg, UNK
  4. NORVASC [Concomitant]
     Dosage: 5 mg, UNK
  5. LIPITOR [Concomitant]
     Dosage: 40 mg, UNK
  6. NASOCORT [Concomitant]
     Dosage: 55 MCG/AC
  7. ENABLEX                            /01760401/ [Concomitant]
     Dosage: 15 mg, UNK
  8. LISINOPRIL [Concomitant]
     Dosage: 40 mg, UNK
  9. MELATONIN [Concomitant]
     Dosage: 2.5 mg, UNK
  10. LORTAB                             /00607101/ [Concomitant]
     Dosage: 2.5 mg, UNK
  11. VITAMIN D [Concomitant]
     Dosage: 1000 unit, UNK
  12. CELEXA                             /00582602/ [Concomitant]
     Dosage: 20 mg, UNK
  13. CLARITIN                           /00413701/ [Concomitant]
     Dosage: 10 mg, UNK

REACTIONS (1)
  - Pneumonia [Recovering/Resolving]
